FAERS Safety Report 26054073 (Version 1)
Quarter: 2025Q4

REPORT INFORMATION
  Report Type: Spontaneous
  Country: CN (occurrence: CN)
  Receive Date: 20251117
  Receipt Date: 20251117
  Transmission Date: 20260117
  Serious: Yes (Other)
  Sender: PFIZER
  Company Number: CN-PFIZER INC-PV202500132717

PATIENT
  Age: 6 Year
  Sex: Female
  Weight: 28.7 kg

DRUGS (2)
  1. AZITHROMYCIN [Suspect]
     Active Substance: AZITHROMYCIN
     Indication: Bronchitis
     Dosage: 0.28 G, 1X/DAY
     Route: 041
     Dates: start: 20251105, end: 20251105
  2. DEXTROSE [Concomitant]
     Active Substance: DEXTROSE MONOHYDRATE
     Indication: Vehicle solution use
     Dosage: 300 ML, 1X/DAY
     Route: 041
     Dates: start: 20251105, end: 20251105

REACTIONS (3)
  - Vomiting [Recovered/Resolved]
  - Infusion site pain [Recovering/Resolving]
  - Off label use [Unknown]

NARRATIVE: CASE EVENT DATE: 20251105
